FAERS Safety Report 9983047 (Version 1)
Quarter: 2014Q1

REPORT INFORMATION
  Report Type: Report from Study
  Country: US (occurrence: US)
  Receive Date: 20140307
  Receipt Date: 20140307
  Transmission Date: 20141002
  Serious: No
  Sender: FDA-Public Use
  Company Number: US-ABBVIE-13P-163-1176551-00

PATIENT
  Age: 42 Year
  Sex: Female

DRUGS (19)
  1. HUMIRA [Suspect]
     Indication: CROHN^S DISEASE
     Dates: start: 20130922, end: 20131201
  2. HUMIRA [Suspect]
     Dates: start: 20131202
  3. KLONOPIN [Concomitant]
     Indication: ANXIETY
  4. VENLAFAXINE [Concomitant]
     Indication: DEPRESSION
  5. TOPAMAX [Concomitant]
     Indication: MIGRAINE
     Dosage: 100 MG IN AM AND 200 MG AT BEDTIME
  6. MAGNESIUM [Concomitant]
     Indication: MIGRAINE
  7. SINGULAIR [Concomitant]
     Indication: ASTHMA
  8. OMPRAZOLE [Concomitant]
     Indication: IMPAIRED GASTRIC EMPTYING
  9. VITAMIN B2 [Concomitant]
     Indication: MIGRAINE
  10. MERCAPTOPURINE [Concomitant]
     Indication: CROHN^S DISEASE
  11. REGLAN [Concomitant]
     Indication: IMPAIRED GASTRIC EMPTYING
  12. DICYCLOMINE [Concomitant]
     Indication: CROHN^S DISEASE
  13. TRAZODONE [Concomitant]
     Indication: ANXIETY
     Dosage: AT BEDTIME
  14. PREDNISONE [Concomitant]
     Indication: CROHN^S DISEASE
  15. ALBUTEROL [Concomitant]
     Indication: ASTHMA
     Route: 055
  16. PROAIR [Concomitant]
     Indication: ASTHMA
     Route: 055
  17. SYMBICORT [Concomitant]
     Indication: ASTHMA
     Route: 055
  18. ASPIRIN [Concomitant]
     Indication: CEREBROVASCULAR ACCIDENT
  19. FIORICET [Concomitant]
     Indication: MIGRAINE
     Dosage: 50/325/40MG

REACTIONS (3)
  - Aphasia [Recovered/Resolved]
  - Migraine [Recovering/Resolving]
  - Hemiplegic migraine [Recovered/Resolved]
